FAERS Safety Report 8132866-6 (Version None)
Quarter: 2012Q1

REPORT INFORMATION
  Report Type: 
  Country: None (occurrence: None)
  Receive Date: 20120213
  Receipt Date: 20120210
  Transmission Date: 20120608
  Serious: Yes (Life-Threatening, Hospitalization)
  Sender: FDA-Public Use
  Company Number: FR-JNJFOC-20120205244

PATIENT
  Sex: Male

DRUGS (8)
  1. RISPERDAL CONSTA [Suspect]
     Indication: ILL-DEFINED DISORDER
     Route: 030
     Dates: start: 20110615, end: 20110629
  2. MIRTAZAPINE [Suspect]
     Indication: ILL-DEFINED DISORDER
     Route: 048
  3. SULFARLEM [Suspect]
     Indication: APTYALISM
     Route: 048
     Dates: start: 20110501
  4. TRIMEPRAZINE TARTRATE [Suspect]
     Indication: ILL-DEFINED DISORDER
     Route: 048
     Dates: start: 20110501, end: 20110601
  5. HAVLANE [Suspect]
     Indication: ILL-DEFINED DISORDER
     Dosage: ONE BOX
     Route: 048
     Dates: start: 20110602, end: 20110602
  6. RISPERDAL [Suspect]
     Route: 048
     Dates: start: 20110401, end: 20110610
  7. RISPERDAL [Suspect]
     Indication: ILL-DEFINED DISORDER
     Route: 048
     Dates: start: 20110610, end: 20110629
  8. LEPTICUR [Suspect]
     Indication: ILL-DEFINED DISORDER
     Route: 048
     Dates: start: 20110501, end: 20110601

REACTIONS (2)
  - DEEP VEIN THROMBOSIS [None]
  - PULMONARY EMBOLISM [None]
